FAERS Safety Report 5207098-1 (Version None)
Quarter: 2007Q1

REPORT INFORMATION
  Report Type: 
  Country: None (occurrence: None)
  Receive Date: 20070112
  Receipt Date: 20070108
  Transmission Date: 20070707
  Serious: Yes (Life-Threatening, Hospitalization)
  Sender: FDA-Public Use
  Company Number: 2007AC00022

PATIENT
  Age: 63 Year
  Sex: Male
  Weight: 89 kg

DRUGS (5)
  1. SELOKEEN ZOC [Suspect]
     Indication: CORONARY ARTERY DISEASE
     Route: 048
     Dates: start: 20060930
  2. ACENOCOUMAROL [Concomitant]
     Dates: start: 20060930
  3. LIPITOR [Concomitant]
     Dates: start: 20060930
  4. PLAVIX [Concomitant]
     Dates: start: 20060930, end: 20061030
  5. LISINOPRILUM [Concomitant]
     Dates: start: 20060930, end: 20061008

REACTIONS (10)
  - ABDOMINAL DISCOMFORT [None]
  - ABDOMINAL PAIN [None]
  - DRUG WITHDRAWAL SYNDROME [None]
  - DYSPHONIA [None]
  - FATIGUE [None]
  - FEELING COLD [None]
  - HYPERHIDROSIS [None]
  - MALAISE [None]
  - OBSESSIVE-COMPULSIVE DISORDER [None]
  - SEXUAL DYSFUNCTION [None]
